FAERS Safety Report 10522632 (Version 1)
Quarter: 2014Q4

REPORT INFORMATION
  Report Type: Spontaneous
  Country: JP (occurrence: None)
  Receive Date: 20141014
  Receipt Date: 20141014
  Transmission Date: 20150528
  Serious: Yes (Hospitalization)
  Sender: FDA-Public Use
  Company Number: 2014-003011

PATIENT
  Age: 84 Year
  Sex: Male

DRUGS (2)
  1. ACTONEL [Suspect]
     Active Substance: RISEDRONATE SODIUM
     Route: 048
     Dates: start: 201408
  2. VITAMIN D AND ANALOGUES [Concomitant]

REACTIONS (6)
  - Nausea [None]
  - Diarrhoea [None]
  - Influenza like illness [None]
  - Hyperthermia [None]
  - Dizziness [None]
  - Seizure [None]

NARRATIVE: CASE EVENT DATE: 201408
